FAERS Safety Report 11858138 (Version 1)
Quarter: 2015Q4

REPORT INFORMATION
  Report Type: Spontaneous
  Country: US (occurrence: US)
  Receive Date: 20151222
  Receipt Date: 20151222
  Transmission Date: 20160305
  Serious: Yes (Other)
  Sender: FDA-Public Use
  Company Number: US-TEVA-575465USA

PATIENT
  Age: 58 Year
  Sex: Male
  Weight: 99.88 kg

DRUGS (1)
  1. TRAZODONE [Suspect]
     Active Substance: TRAZODONE HYDROCHLORIDE
     Indication: INSOMNIA
     Dosage: 300 MILLIGRAM DAILY;
     Dates: start: 20150624, end: 20150629

REACTIONS (3)
  - Anger [Unknown]
  - Panic attack [Unknown]
  - Suicidal ideation [Unknown]

NARRATIVE: CASE EVENT DATE: 201506
